FAERS Safety Report 6188264-8 (Version None)
Quarter: 2009Q2

REPORT INFORMATION
  Report Type: 
  Country: None (occurrence: None)
  Receive Date: 20090513
  Receipt Date: 20090508
  Transmission Date: 20091009
  Serious: Yes (Hospitalization)
  Sender: FDA-Public Use
  Company Number: US-BIOGENIDEC-2009BI012972

PATIENT
  Age: 66 Year
  Sex: Male

DRUGS (3)
  1. AVONEX [Suspect]
     Indication: MULTIPLE SCLEROSIS
     Route: 030
     Dates: start: 19960101
  2. AVONEX [Suspect]
     Route: 030
     Dates: start: 20020416
  3. AVONEX [Suspect]
     Route: 030

REACTIONS (3)
  - BACTERAEMIA [None]
  - CELLULITIS [None]
  - URINARY TRACT INFECTION [None]
